FAERS Safety Report 4786111-X (Version None)
Quarter: 2005Q4

REPORT INFORMATION
  Report Type: 
  Country: None (occurrence: None)
  Receive Date: 20051003
  Receipt Date: 20050920
  Transmission Date: 20060501
  Serious: Yes (Other)
  Sender: FDA-Public Use
  Company Number: IE-ABBOTT-05P-229-0311628-00

PATIENT
  Age: 20 Year
  Sex: Female

DRUGS (3)
  1. EPILIM CHRONO TABLET PR [Suspect]
     Indication: AFFECTIVE DISORDER
     Route: 048
     Dates: start: 20030601
  2. EPILIM CHRONO TABLET PR [Suspect]
     Dosage: INCREASED
  3. OLANZAPINE [Concomitant]
     Indication: DRUG USE FOR UNKNOWN INDICATION
     Route: 048
     Dates: start: 20030901

REACTIONS (2)
  - DEPRESSED MOOD [None]
  - DRUG LEVEL FLUCTUATING [None]
